FAERS Safety Report 7773972-5 (Version None)
Quarter: 2011Q3

REPORT INFORMATION
  Report Type: 
  Country: None (occurrence: None)
  Receive Date: 20110923
  Receipt Date: 20110916
  Transmission Date: 20111222
  Serious: Yes (Other)
  Sender: FDA-Public Use
  Company Number: JP-PFIZER INC-2011219219

PATIENT
  Age: 25 Year
  Sex: Female

DRUGS (2)
  1. LUTORAL [Concomitant]
  2. PREMARIN [Suspect]
     Dosage: UNK
     Dates: start: 20110914

REACTIONS (3)
  - INSULIN RESISTANCE [None]
  - THIRST [None]
  - ANDROGENS ABNORMAL [None]
